FAERS Safety Report 14160974 (Version 2)
Quarter: 2018Q2

REPORT INFORMATION
  Report Type: Spontaneous
  Country: US (occurrence: US)
  Receive Date: 20171106
  Receipt Date: 20180515
  Transmission Date: 20180711
  Serious: No
  Sender: FDA-Public Use
  Company Number: US-PFIZER INC-2017475036

PATIENT
  Sex: Female
  Weight: 112.47 kg

DRUGS (7)
  1. DOCETAXEL. [Suspect]
     Active Substance: DOCETAXEL
     Indication: BREAST CANCER
     Dosage: UNK
     Dates: start: 20120605, end: 20130617
  2. DOCETAXEL. [Suspect]
     Active Substance: DOCETAXEL
     Dosage: 6 CYCLES, EVERY 3 WEEKS
     Dates: start: 20120605, end: 20121002
  3. SYNTHROID [Concomitant]
     Active Substance: LEVOTHYROXINE SODIUM
     Dosage: 50 UG, UNK
  4. ARMOUR THYROID [Concomitant]
     Active Substance: THYROID, PORCINE
  5. TAXOTERE [Suspect]
     Active Substance: DOCETAXEL
     Dosage: 6 CYCLES, EVERY 3 WEEKS
     Dates: start: 20120605, end: 20121002
  6. PARAPLATIN [Concomitant]
     Active Substance: CARBOPLATIN
  7. TAXOTERE [Suspect]
     Active Substance: DOCETAXEL
     Indication: BREAST CANCER
     Dosage: UNK
     Dates: start: 20120605, end: 20130617

REACTIONS (5)
  - Hair colour changes [Not Recovered/Not Resolved]
  - Hair texture abnormal [Not Recovered/Not Resolved]
  - Madarosis [Not Recovered/Not Resolved]
  - Alopecia [Not Recovered/Not Resolved]
  - Hair disorder [Not Recovered/Not Resolved]

NARRATIVE: CASE EVENT DATE: 201304
